FAERS Safety Report 5705879-9 (Version None)
Quarter: 2008Q2

REPORT INFORMATION
  Report Type: 
  Country: None (occurrence: None)
  Receive Date: 20080415
  Receipt Date: 20080410
  Transmission Date: 20081010
  Serious: Yes (Hospitalization)
  Sender: FDA-Public Use
  Company Number: FR-WYE-G01379708

PATIENT
  Sex: Male

DRUGS (2)
  1. ADVIL [Suspect]
     Indication: UPPER RESPIRATORY TRACT INFECTION
     Dosage: UNKNOWN
     Route: 048
     Dates: start: 20080118, end: 20080119
  2. ZITHROMAX [Suspect]
     Indication: UPPER RESPIRATORY TRACT INFECTION
     Dosage: UNKNOWN
     Route: 048
     Dates: start: 20080118

REACTIONS (2)
  - OEDEMA PERIPHERAL [None]
  - TONGUE OEDEMA [None]
